FAERS Safety Report 9730165 (Version 1)
Quarter: 2013Q4

REPORT INFORMATION
  Report Type: Spontaneous
  Country: US (occurrence: US)
  Receive Date: 20131204
  Receipt Date: 20131204
  Transmission Date: 20140711
  Serious: No
  Sender: FDA-Public Use
  Company Number: US-TEVA-446978USA

PATIENT
  Sex: Female
  Weight: 108.96 kg

DRUGS (23)
  1. NUVIGIL [Suspect]
     Indication: BIPOLAR DISORDER
     Dosage: 150
     Dates: start: 201308
  2. NUVIGIL [Suspect]
     Indication: DEPRESSION
  3. LAMICTAL [Concomitant]
     Indication: BIPOLAR DISORDER
  4. LAMOTRIGINE [Concomitant]
     Indication: BIPOLAR DISORDER
  5. CELEXA [Concomitant]
     Indication: DEPRESSION
  6. CLONAZEPAM [Concomitant]
     Indication: ANXIETY
  7. OXCARBAZEPINE [Concomitant]
     Indication: BIPOLAR DISORDER
  8. ALLOPURINOL [Concomitant]
     Indication: RENAL FAILURE
  9. ZEMPLAR [Concomitant]
     Indication: RENAL FAILURE
  10. VITAMIN D [Concomitant]
     Indication: VITAMIN SUPPLEMENTATION
  11. GABAPENTIN [Concomitant]
     Indication: ARTHRITIS
  12. MELATONIN [Concomitant]
     Indication: SLEEP APNOEA SYNDROME
  13. VITAMIN B12 [Concomitant]
     Indication: VITAMIN SUPPLEMENTATION
  14. OMEPRAZOLE [Concomitant]
     Indication: GASTROOESOPHAGEAL REFLUX DISEASE
  15. MENEST [Concomitant]
     Indication: HORMONE REPLACEMENT THERAPY
  16. FUROSEMIDE [Concomitant]
     Indication: FLUID RETENTION
  17. LEVOTHYROXINE [Concomitant]
     Indication: HYPOTHYROIDISM
  18. LOVASTATIN [Concomitant]
     Indication: BLOOD CHOLESTEROL INCREASED
  19. PROMETHAZINE [Concomitant]
     Indication: NAUSEA
  20. SYMBICORT [Concomitant]
     Indication: CHRONIC OBSTRUCTIVE PULMONARY DISEASE
  21. PRO-AIR [Concomitant]
     Indication: CHRONIC OBSTRUCTIVE PULMONARY DISEASE
  22. HUMALOG [Concomitant]
     Indication: DIABETES MELLITUS
  23. GLUCOSE [Concomitant]
     Indication: DIABETES MELLITUS

REACTIONS (1)
  - Fall [Not Recovered/Not Resolved]
